FAERS Safety Report 9442246 (Version 1)
Quarter: 2013Q3

REPORT INFORMATION
  Report Type: Spontaneous
  Country: US (occurrence: None)
  Receive Date: 20130805
  Receipt Date: 20130805
  Transmission Date: 20140515
  Serious: Yes (Other)
  Sender: FDA-Public Use
  Company Number: None

PATIENT
  Age: 79 None
  Sex: Female

DRUGS (3)
  1. CLINDAMYCIN [Suspect]
     Indication: INFECTION PROPHYLAXIS
     Dates: start: 20130226, end: 20130304
  2. LEVOTHYROXINE [Concomitant]
  3. IRBESARTAN [Concomitant]

REACTIONS (2)
  - Diarrhoea [None]
  - Weight decreased [None]
